APPROVED DRUG PRODUCT: LEVETIRACETAM
Active Ingredient: LEVETIRACETAM
Strength: 250MG
Dosage Form/Route: TABLET;ORAL
Application: A091491 | Product #001 | TE Code: AB
Applicant: ZHEJIANG JINGXIN PHARMACEUTICAL CO LTD
Approved: Dec 14, 2010 | RLD: No | RS: No | Type: RX